FAERS Safety Report 5926238-X (Version None)
Quarter: 2008Q4

REPORT INFORMATION
  Report Type: 
  Country: None (occurrence: None)
  Receive Date: 20081022
  Receipt Date: 20081020
  Transmission Date: 20090506
  Serious: Yes (Hospitalization)
  Sender: FDA-Public Use
  Company Number: FR-SP-2008-03251

PATIENT
  Age: 60 Year
  Sex: Male

DRUGS (8)
  1. IMMUCYST [Suspect]
     Indication: URINARY BLADDER POLYP
     Route: 043
     Dates: start: 20080909
  2. IMMUCYST [Suspect]
     Route: 043
     Dates: start: 20080909
  3. IMMUCYST [Suspect]
     Route: 043
     Dates: start: 20080909
  4. STAGID [Concomitant]
     Dosage: 1.5/DAY
     Route: 048
  5. CRESTOR [Concomitant]
     Route: 048
  6. KENZEN [Concomitant]
     Route: 048
  7. LEVEMIR [Concomitant]
  8. NOVORAPID [Concomitant]

REACTIONS (4)
  - CHILLS [None]
  - PANCYTOPENIA [None]
  - PULMONARY TUBERCULOSIS [None]
  - PYREXIA [None]
